FAERS Safety Report 10062177 (Version 1)
Quarter: 2014Q2

REPORT INFORMATION
  Report Type: Spontaneous
  Country: SE (occurrence: SE)
  Receive Date: 20140407
  Receipt Date: 20140407
  Transmission Date: 20141212
  Serious: Yes (Other)
  Sender: FDA-Public Use
  Company Number: SE-PFIZER INC-2014090967

PATIENT
  Age: 76 Year
  Sex: Female

DRUGS (1)
  1. XALATAN [Suspect]
     Indication: INTRAOCULAR PRESSURE INCREASED
     Dosage: UNK
     Route: 047
     Dates: start: 1996, end: 2013

REACTIONS (4)
  - Optic nerve injury [Unknown]
  - Visual acuity reduced [Unknown]
  - Foreign body sensation in eyes [Recovered/Resolved]
  - Vision blurred [Unknown]
